FAERS Safety Report 4874542-9 (Version None)
Quarter: 2006Q1

REPORT INFORMATION
  Report Type: 
  Country: None (occurrence: None)
  Receive Date: 20060106
  Receipt Date: 20050621
  Transmission Date: 20060701
  Serious: Yes (Hospitalization, Other)
  Sender: FDA-Public Use
  Company Number: 200515248US

PATIENT
  Sex: Female

DRUGS (10)
  1. LANTUS [Suspect]
     Dosage: DOSE UNIT: UNITS
     Route: 058
     Dates: start: 20040101
  2. LANTUS [Suspect]
     Dosage: DOSE UNIT: UNITS
     Route: 058
     Dates: start: 20050501
  3. GLYBURIDE [Concomitant]
     Dosage: DOSE: %
  4. ACTOS [Concomitant]
  5. BENICAR                                 /USA/ [Concomitant]
  6. DILTIAZEM HCL [Concomitant]
  7. SYNTHROID [Concomitant]
  8. LASIX [Concomitant]
  9. LORAZEPAM [Concomitant]
  10. GLUCOPHAGE [Concomitant]
     Dosage: DOSE: UNK
     Dates: end: 20050501

REACTIONS (2)
  - HYPERGLYCAEMIA [None]
  - NEPHROLITHIASIS [None]
